FAERS Safety Report 6526894-1 (Version None)
Quarter: 2010Q1

REPORT INFORMATION
  Report Type: 
  Country: None (occurrence: None)
  Receive Date: 20100105
  Receipt Date: 20091230
  Transmission Date: 20100710
  Serious: Yes (Disabling, Other)
  Sender: FDA-Public Use
  Company Number: PHRM2007FR00556

PATIENT
  Sex: Female
  Weight: 60 kg

DRUGS (7)
  1. FEMARA [Suspect]
     Indication: BREAST CANCER
     Dosage: 2.5 MG, QD
     Route: 048
     Dates: start: 20061207, end: 20070120
  2. SIMVASTATIN [Suspect]
     Indication: HYPERCHOLESTEROLAEMIA
     Dosage: 20 MG, QD
     Route: 048
     Dates: start: 20060106
  3. KREDEX [Concomitant]
     Indication: CARDIAC FAILURE
     Dates: start: 20040101
  4. COVERSYL /FRA/ [Concomitant]
     Indication: CARDIAC FAILURE
     Dosage: 4 MG DAILY
     Route: 048
     Dates: start: 20040101
  5. LEVOTHYROXINE SODIUM [Concomitant]
     Indication: THYROID DISORDER
     Route: 048
     Dates: start: 20050101
  6. HORMONES AND RELATED AGENTS [Concomitant]
     Indication: BREAST CANCER
  7. RADIOTHERAPY [Concomitant]
     Indication: BREAST CANCER

REACTIONS (5)
  - DEMYELINATING POLYNEUROPATHY [None]
  - GAIT DISTURBANCE [None]
  - HYPOAESTHESIA [None]
  - PARAESTHESIA [None]
  - SENSORY DISTURBANCE [None]
